APPROVED DRUG PRODUCT: RIMANTADINE HYDROCHLORIDE
Active Ingredient: RIMANTADINE HYDROCHLORIDE
Strength: 100MG
Dosage Form/Route: TABLET;ORAL
Application: A075916 | Product #001
Applicant: IMPAX LABORATORIES INC
Approved: Nov 2, 2001 | RLD: No | RS: No | Type: DISCN